FAERS Safety Report 13838542 (Version 2)
Quarter: 2017Q3

REPORT INFORMATION
  Report Type: Spontaneous
  Country: IT (occurrence: IT)
  Receive Date: 20170807
  Receipt Date: 20170817
  Transmission Date: 20171127
  Serious: Yes (Other)
  Sender: FDA-Public Use
  Company Number: IT-ROCHE-1972973

PATIENT
  Age: 51 Year
  Sex: Male

DRUGS (12)
  1. ESKIM [Concomitant]
     Active Substance: OMEGA-3 FATTY ACIDS
     Dosage: 1000 MG SOFT CAPSULES 20 CAPSULES
     Route: 048
  2. MABTHERA [Suspect]
     Active Substance: RITUXIMAB
     Indication: NEPHROTIC SYNDROME
     Dosage: 1 VIAL 500 MG 50 ML
     Route: 042
     Dates: start: 20170728, end: 20170728
  3. MICARDIS [Concomitant]
     Active Substance: TELMISARTAN
     Dosage: 40 MG 28 TABLETS IN BLISTER PACK, ORAL USE
     Route: 048
  4. TRIATEC (ITALY) [Concomitant]
     Active Substance: RAMIPRIL
     Dosage: 10 MG TABLETS 28 SCORED TABLETS
     Route: 065
  5. LASIX [Concomitant]
     Active Substance: FUROSEMIDE
     Dosage: 25 MG TABLETS 30 TABLETS
     Route: 048
     Dates: start: 20170728, end: 20170728
  6. CLARITYN (ITALY) [Concomitant]
     Dosage: 10 MG TABLETS 20 TABLETS
     Route: 048
     Dates: start: 20170728, end: 20170728
  7. DELTACORTENE [Concomitant]
     Active Substance: PREDNISONE
     Route: 048
     Dates: start: 20170728, end: 20170728
  8. PANTORC [Concomitant]
     Active Substance: PANTOPRAZOLE SODIUM
     Dosage: 14 GASTRORESISTANT TABLETS 40 MG IN BLISTER AL/AL
     Route: 065
  9. IPERTEN [Concomitant]
     Active Substance: MANIDIPINE
     Dosage: 10 MG TABLETS 28 TABLETS
     Route: 065
  10. LOBIVON [Concomitant]
     Active Substance: NEBIVOLOL HYDROCHLORIDE
     Dosage: 28 X 5 MG TABLETS
     Route: 048
  11. COUMADIN [Concomitant]
     Active Substance: WARFARIN SODIUM
     Dosage: 5 MG TABLETS 30 SCORED TABLETS
     Route: 065
  12. ATORVASTATIN [Concomitant]
     Active Substance: ATORVASTATIN
     Dosage: 10 MG 28 TABLETS IN PA/AL/PVC AL BLISTER PACK
     Route: 048

REACTIONS (3)
  - Urticaria [Recovered/Resolved]
  - Tongue oedema [Recovered/Resolved]
  - Off label use [Unknown]

NARRATIVE: CASE EVENT DATE: 20170728
